FAERS Safety Report 5027420-9 (Version None)
Quarter: 2006Q2

REPORT INFORMATION
  Report Type: 
  Country: None (occurrence: None)
  Receive Date: 20060501
  Receipt Date: 20060220
  Transmission Date: 20061013
  Serious: No
  Sender: FDA-Public Use
  Company Number: 200610960BWH

PATIENT
  Age: 73 Year
  Sex: Male

DRUGS (4)
  1. NEXAVAR [Suspect]
     Indication: CLEAR CELL CARCINOMA OF THE KIDNEY
     Dosage: 400 MG, BID, ORAL
     Route: 048
     Dates: start: 20060101
  2. NORVASC [Concomitant]
  3. FLONASE [Concomitant]
  4. LIPITOR [Concomitant]

REACTIONS (5)
  - DIFFICULTY IN WALKING [None]
  - DRY SKIN [None]
  - PAIN IN EXTREMITY [None]
  - PALMAR-PLANTAR ERYTHRODYSAESTHESIA SYNDROME [None]
  - PRURITUS [None]
